FAERS Safety Report 6125256-9 (Version None)
Quarter: 2009Q1

REPORT INFORMATION
  Report Type: 
  Country: None (occurrence: None)
  Receive Date: 20090320
  Receipt Date: 20090312
  Transmission Date: 20090719
  Serious: Yes (Other)
  Sender: FDA-Public Use
  Company Number: PHEH2009US02569

PATIENT
  Sex: Female

DRUGS (4)
  1. EXELON [Suspect]
     Dosage: 4.6 UNK, UNK
     Route: 062
  2. FLECAINIDE ACETATE [Concomitant]
  3. CALCIUM [Concomitant]
  4. ASPIRIN [Concomitant]

REACTIONS (5)
  - DIZZINESS [None]
  - FALL [None]
  - HYPOTENSION [None]
  - RIB FRACTURE [None]
  - TRANSIENT ISCHAEMIC ATTACK [None]
